FAERS Safety Report 20994002 (Version 6)
Quarter: 2023Q2

REPORT INFORMATION
  Report Type: Spontaneous
  Country: US (occurrence: US)
  Receive Date: 20220622
  Receipt Date: 20230614
  Transmission Date: 20230722
  Serious: Yes (Other)
  Sender: FDA-Public Use
  Company Number: US-BAYER-2022A084229

PATIENT
  Age: 54 Year
  Sex: Female

DRUGS (9)
  1. GADOBUTROL [Suspect]
     Active Substance: GADOBUTROL
     Indication: Neck pain
     Dosage: UNK
     Dates: start: 20140225
  2. GADOBUTROL [Suspect]
     Active Substance: GADOBUTROL
     Indication: Radiculopathy
     Dosage: UNK UNK, ONCE
     Dates: start: 20141212, end: 20141212
  3. GADOBUTROL [Suspect]
     Active Substance: GADOBUTROL
     Indication: Neuropathy peripheral
  4. GADOBUTROL [Suspect]
     Active Substance: GADOBUTROL
     Indication: Pain
  5. GADOBUTROL [Suspect]
     Active Substance: GADOBUTROL
     Indication: Asthenia
  6. GADOBUTROL [Suspect]
     Active Substance: GADOBUTROL
     Indication: Hypoaesthesia
  7. GADOBUTROL [Suspect]
     Active Substance: GADOBUTROL
     Indication: Paraesthesia
  8. GADOBUTROL [Suspect]
     Active Substance: GADOBUTROL
     Indication: Magnetic resonance imaging
  9. MULTIHANCE [Suspect]
     Active Substance: GADOBENATE DIMEGLUMINE
     Indication: Magnetic resonance imaging head
     Dosage: 10 ML
     Dates: start: 20130918, end: 20130918

REACTIONS (32)
  - Gadolinium deposition disease [None]
  - Nephrogenic systemic fibrosis [Unknown]
  - Contrast media toxicity [None]
  - Brain injury [Not Recovered/Not Resolved]
  - Arrhythmia [None]
  - Renal failure [Not Recovered/Not Resolved]
  - Syncope [Not Recovered/Not Resolved]
  - Nephrolithiasis [Not Recovered/Not Resolved]
  - Arthralgia [Not Recovered/Not Resolved]
  - Nausea [Not Recovered/Not Resolved]
  - Renal pain [Not Recovered/Not Resolved]
  - Fluid intake reduced [Not Recovered/Not Resolved]
  - Disorientation [Not Recovered/Not Resolved]
  - Balance disorder [Not Recovered/Not Resolved]
  - Tremor [None]
  - Muscle spasms [Not Recovered/Not Resolved]
  - Muscle twitching [Not Recovered/Not Resolved]
  - Vomiting [Not Recovered/Not Resolved]
  - Dysphagia [Not Recovered/Not Resolved]
  - Dyspnoea [Not Recovered/Not Resolved]
  - Haematuria [Not Recovered/Not Resolved]
  - Abdominal pain [Not Recovered/Not Resolved]
  - Chest pain [Not Recovered/Not Resolved]
  - Feeding disorder [Not Recovered/Not Resolved]
  - Back pain [Not Recovered/Not Resolved]
  - Spinal pain [Not Recovered/Not Resolved]
  - Nontherapeutic agent blood positive [Not Recovered/Not Resolved]
  - Infection [Not Recovered/Not Resolved]
  - Brain fog [Not Recovered/Not Resolved]
  - Lung disorder [Not Recovered/Not Resolved]
  - Loss of personal independence in daily activities [Not Recovered/Not Resolved]
  - Nontherapeutic agent urine positive [None]

NARRATIVE: CASE EVENT DATE: 20140225
